FAERS Safety Report 11925188 (Version 1)
Quarter: 2016Q1

REPORT INFORMATION
  Report Type: Spontaneous
  Country: US (occurrence: US)
  Receive Date: 20160118
  Receipt Date: 20160118
  Transmission Date: 20160526
  Serious: Yes (Disabling, Other)
  Sender: FDA-Public Use
  Company Number: US-BRISTOL-MYERS SQUIBB COMPANY-BMS-2016-001754

PATIENT
  Age: 58 Year
  Sex: Male

DRUGS (3)
  1. ELIQUIS [Suspect]
     Active Substance: APIXABAN
     Dosage: 5 MG, QD
     Route: 048
  2. ELIQUIS [Suspect]
     Active Substance: APIXABAN
     Indication: THROMBOSIS PROPHYLAXIS
     Dosage: 5 MG, BID
     Route: 048
     Dates: start: 20151216
  3. ELIQUIS [Suspect]
     Active Substance: APIXABAN
     Dosage: 10 MG, UNK
     Route: 048
     Dates: start: 20160106

REACTIONS (3)
  - Epistaxis [Recovered/Resolved]
  - Incorrect dose administered [Unknown]
  - Pneumonia [Unknown]

NARRATIVE: CASE EVENT DATE: 20160106
